FAERS Safety Report 9707312 (Version 1)
Quarter: 2013Q4

REPORT INFORMATION
  Report Type: Spontaneous
  Country: US (occurrence: US)
  Receive Date: 20131125
  Receipt Date: 20131125
  Transmission Date: 20140711
  Serious: No
  Sender: FDA-Public Use
  Company Number: US-GLAXOSMITHKLINE-A1006217A

PATIENT
  Age: 76 Year
  Sex: Female

DRUGS (6)
  1. FLOVENT [Suspect]
     Indication: TRACHEOBRONCHITIS
     Dosage: 1PUFF TWICE PER DAY
     Route: 055
     Dates: start: 20121219
  2. VESICARE [Concomitant]
  3. LISINOPRIL [Concomitant]
  4. ALLOPURINOL [Concomitant]
  5. NEXIUM [Concomitant]
  6. STATINS [Concomitant]

REACTIONS (3)
  - Cough [Recovering/Resolving]
  - Dyspnoea [Unknown]
  - Drug ineffective [Unknown]
